FAERS Safety Report 6489793-X (Version None)
Quarter: 2009Q4

REPORT INFORMATION
  Report Type: 
  Country: None (occurrence: None)
  Receive Date: 20091211
  Receipt Date: 20091129
  Transmission Date: 20100525
  Serious: Yes (Other)
  Sender: FDA-Public Use
  Company Number: US-RB-026599-09

PATIENT
  Sex: Male

DRUGS (1)
  1. MUCINEX DM [Suspect]
     Dosage: TOOK 2 TABLETS THEN TOOK ANOTHER 2 TABLETS 8 HOURS LATER
     Route: 048
     Dates: start: 20091129

REACTIONS (4)
  - EXTRASYSTOLES [None]
  - INAPPROPRIATE SCHEDULE OF DRUG ADMINISTRATION [None]
  - INSOMNIA [None]
  - TACHYCARDIA [None]
